FAERS Safety Report 11000830 (Version 1)
Quarter: 2015Q2

REPORT INFORMATION
  Report Type: Spontaneous
  Country: US (occurrence: US)
  Receive Date: 20150408
  Receipt Date: 20150408
  Transmission Date: 20150821
  Serious: No
  Sender: FDA-Public Use
  Company Number: US-SA-2014SA154420

PATIENT
  Age: 41 Year
  Sex: Female

DRUGS (1)
  1. ALLEGRA [Suspect]
     Active Substance: FEXOFENADINE HYDROCHLORIDE
     Route: 048
     Dates: start: 2014

REACTIONS (5)
  - Allergic sinusitis [Unknown]
  - Inappropriate schedule of drug administration [Unknown]
  - Abdominal discomfort [Unknown]
  - Drug intolerance [Unknown]
  - Feeling abnormal [Unknown]
